FAERS Safety Report 5593134-X (Version None)
Quarter: 2008Q1

REPORT INFORMATION
  Report Type: 
  Country: None (occurrence: None)
  Receive Date: 20080114
  Receipt Date: 20080114
  Transmission Date: 20080703
  Serious: Yes (Death)
  Sender: FDA-Public Use
  Company Number: None

PATIENT
  Sex: Female
  Weight: 68.3117 kg

DRUGS (2)
  1. CHANTIX [Suspect]
     Indication: SMOKING CESSATION THERAPY
     Dosage: 1/2 TABLET  QAM X 3 DAYS  PO
     Route: 048
     Dates: start: 20071116, end: 20071118
  2. CHANTIX [Suspect]
     Indication: SMOKING CESSATION THERAPY
     Dosage: 1/2 TABLET  BID X 4 DAYS  PO
     Route: 048
     Dates: start: 20071119, end: 20071123

REACTIONS (1)
  - COMPLETED SUICIDE [None]
